FAERS Safety Report 5152535-4 (Version None)
Quarter: 2006Q4

REPORT INFORMATION
  Report Type: 
  Country: None (occurrence: None)
  Receive Date: 20061102
  Receipt Date: 20061031
  Transmission Date: 20070319
  Serious: Yes (Other)
  Sender: FDA-Public Use
  Company Number: 2006AL003365

PATIENT
  Age: 7 Year
  Sex: Male

DRUGS (4)
  1. FLUOXETINE [Suspect]
     Dosage: 20 MG; QD; PO
     Route: 048
  2. RISPERIDONE [Concomitant]
  3. ATOMOXETINE HYDROCHLORIDE [Concomitant]
  4. HYDROCHLORIDE [Concomitant]

REACTIONS (1)
  - ACUTE MYELOID LEUKAEMIA [None]
